FAERS Safety Report 23723042 (Version 2)
Quarter: 2024Q2

REPORT INFORMATION
  Report Type: Spontaneous
  Country: DE (occurrence: DE)
  Receive Date: 20240409
  Receipt Date: 20240618
  Transmission Date: 20240716
  Serious: Yes (Hospitalization)
  Sender: FDA-Public Use
  Company Number: DE-GILEAD-2024-0663979

PATIENT
  Sex: Male
  Weight: 98 kg

DRUGS (26)
  1. PEMBROLIZUMAB [Suspect]
     Active Substance: PEMBROLIZUMAB
     Indication: Non-small cell lung cancer metastatic
     Dosage: 200 MG
     Route: 042
     Dates: start: 20240104, end: 20240104
  2. PEMBROLIZUMAB [Suspect]
     Active Substance: PEMBROLIZUMAB
     Dosage: 200 MG
     Route: 042
     Dates: start: 20240125, end: 20240125
  3. PEMBROLIZUMAB [Suspect]
     Active Substance: PEMBROLIZUMAB
     Dosage: 200 MG
     Route: 042
     Dates: start: 20240215, end: 20240215
  4. PEMBROLIZUMAB [Suspect]
     Active Substance: PEMBROLIZUMAB
     Dosage: 200 MG
     Route: 042
     Dates: start: 20240312, end: 20240312
  5. CARBOPLATIN [Suspect]
     Active Substance: CARBOPLATIN
     Indication: Non-small cell lung cancer metastatic
     Dosage: 656.8 MG
     Route: 042
     Dates: start: 20240104, end: 20240104
  6. CARBOPLATIN [Suspect]
     Active Substance: CARBOPLATIN
     Dosage: 656.8 MG
     Route: 042
     Dates: start: 20240125, end: 20240125
  7. CARBOPLATIN [Suspect]
     Active Substance: CARBOPLATIN
     Dosage: 656.8 MG
     Route: 042
     Dates: start: 20240215, end: 20240215
  8. PEMETREXED [Suspect]
     Active Substance: PEMETREXED
     Indication: Non-small cell lung cancer metastatic
     Dosage: 1100 MG
     Route: 042
     Dates: start: 20240104, end: 20240104
  9. PEMETREXED [Suspect]
     Active Substance: PEMETREXED
     Dosage: 1100 MG
     Route: 042
     Dates: start: 20240125, end: 20240125
  10. PEMETREXED [Suspect]
     Active Substance: PEMETREXED
     Dosage: 1100 MG
     Route: 042
     Dates: start: 20240215, end: 20240215
  11. PALONOSETRON [Concomitant]
     Active Substance: PALONOSETRON
     Indication: Premedication
     Dosage: UNK
     Route: 042
     Dates: start: 20240104, end: 20240215
  12. DEXAMETHASONE [Concomitant]
     Active Substance: DEXAMETHASONE
     Indication: Premedication
     Dosage: UNK
     Route: 048
     Dates: start: 20240103, end: 20240216
  13. ASPIRIN [Concomitant]
     Active Substance: ASPIRIN
     Indication: Arteriosclerosis
     Dosage: UNK
     Route: 048
     Dates: start: 2013
  14. DIMETHINDENE [Concomitant]
     Active Substance: DIMETHINDENE
     Indication: Premedication
     Dosage: UNK
     Route: 042
     Dates: start: 20240104, end: 20240215
  15. DIMETHINDENE [Concomitant]
     Active Substance: DIMETHINDENE
     Dosage: UNK
     Route: 042
     Dates: start: 20240104, end: 20240215
  16. HYDROCORTISONE [Concomitant]
     Active Substance: HYDROCORTISONE\HYDROCORTISONE ACETATE
     Indication: Pruritus
     Route: 061
     Dates: start: 20240125
  17. ZIEXTENZO [Concomitant]
     Active Substance: PEGFILGRASTIM-BMEZ
     Indication: Prophylaxis
     Dosage: UNK
     Route: 058
     Dates: start: 20240107, end: 20240222
  18. FENOTEROL HYDROBROMIDE\IPRATROPIUM BROMIDE [Concomitant]
     Active Substance: FENOTEROL HYDROBROMIDE\IPRATROPIUM BROMIDE
     Indication: Dyspnoea
     Dosage: UNK
     Route: 055
     Dates: start: 2023
  19. CANDESARTAN [Concomitant]
     Active Substance: CANDESARTAN
     Indication: Hypertension
     Dosage: UNK
     Route: 048
  20. POLYETHYLENE GLYCOL 3350\POTASSIUM CHLORIDE\SODIUM BICARBONATE\SODIUM [Concomitant]
     Active Substance: POLYETHYLENE GLYCOL 3350\POTASSIUM CHLORIDE\SODIUM BICARBONATE\SODIUM CHLORIDE
     Indication: Constipation
     Dosage: UNK
     Route: 048
     Dates: start: 20240125
  21. AMLODIPINE [Concomitant]
     Active Substance: AMLODIPINE BESYLATE
     Indication: Hypertension
     Route: 048
  22. FOLATE SODIUM [Concomitant]
     Active Substance: FOLATE SODIUM
     Indication: Supplementation therapy
     Dosage: UNK
     Route: 048
     Dates: start: 20231213
  23. VITAMIN B12 [Concomitant]
     Active Substance: CYANOCOBALAMIN
     Indication: Premedication
     Dosage: UNK
     Route: 058
     Dates: start: 20240104
  24. BECLOMETHASONE DIPROPIONATE\FORMOTEROL FUMARATE\GLYCOPYRROLATE [Concomitant]
     Active Substance: BECLOMETHASONE DIPROPIONATE\FORMOTEROL FUMARATE\GLYCOPYRROLATE
     Indication: Chronic obstructive pulmonary disease
     Dosage: UNK
     Route: 055
     Dates: start: 2023
  25. MCP [Concomitant]
     Active Substance: METOCLOPRAMIDE HYDROCHLORIDE
     Indication: Nausea
     Dosage: UNK
     Route: 048
     Dates: start: 20240125
  26. CIMETIDINE [Concomitant]
     Active Substance: CIMETIDINE
     Indication: Premedication
     Dosage: UNK
     Route: 042
     Dates: start: 20240104, end: 20240215

REACTIONS (1)
  - Platelet count decreased [Recovered/Resolved]

NARRATIVE: CASE EVENT DATE: 20240301
